FAERS Safety Report 7138204-X (Version None)
Quarter: 2010Q4

REPORT INFORMATION
  Report Type: 
  Country: None (occurrence: None)
  Receive Date: 20101118
  Receipt Date: 20101029
  Transmission Date: 20110411
  Serious: Yes (Other)
  Sender: FDA-Public Use
  Company Number: 2010004689

PATIENT
  Age: 68 Year
  Sex: Male

DRUGS (1)
  1. TARCEVA [Suspect]
     Indication: LUNG NEOPLASM MALIGNANT
     Dosage: (150 MG, QD), ORAL
     Route: 048
     Dates: start: 20101002

REACTIONS (5)
  - ATRIAL FIBRILLATION [None]
  - DEPRESSION [None]
  - NAUSEA [None]
  - RASH [None]
  - RHEUMATOID ARTHRITIS [None]
